FAERS Safety Report 8108647 (Version 3)
Quarter: 2012Q4

REPORT INFORMATION
  Report Type: 
  Country: AU (occurrence: AU)
  Receive Date: 20110826
  Receipt Date: 20121016
  Transmission Date: 20130627
  Serious: Yes (Hospitalization, Other)
  Sender: FDA-Public Use
  Company Number: AU-CELGENEUS-008-21880-11081932

PATIENT
  Age: 67 Year
  Sex: Male

DRUGS (15)
  1. REVLIMID [Suspect]
     Indication: MULTIPLE MYELOMA
     Dosage: 5 Milligram
     Route: 048
     Dates: start: 200809, end: 201101
  2. REVLIMID [Suspect]
     Route: 048
     Dates: start: 201106
  3. ZOMETA [Concomitant]
     Indication: MULTIPLE MYELOMA
     Route: 065
     Dates: start: 200605
  4. ZOMETA [Concomitant]
     Route: 065
     Dates: start: 201106
  5. WARFARIN [Concomitant]
     Indication: ATRIAL FIBRILLATION
     Route: 048
  6. MICARDIS PLUS [Concomitant]
     Indication: HYPERTENSION
     Route: 048
  7. MICARDIS PLUS [Concomitant]
     Indication: ISCHAEMIC HEART DISEASE
  8. BIZON [Concomitant]
     Indication: HYPERTENSION
     Dosage: 20 Milligram
     Route: 048
  9. BIZON [Concomitant]
     Indication: ISCHAEMIC HEART DISEASE
  10. NEXIUM [Concomitant]
     Indication: GASTROESOPHAGEAL REFLUX DISEASE
     Dosage: 40 Milligram
     Route: 065
  11. FELDENE D [Concomitant]
     Indication: BACK PAIN
     Route: 065
  12. ZANIDIP [Concomitant]
     Indication: HYPERTENSION
     Route: 065
  13. ZANIDIP [Concomitant]
     Indication: ISCHAEMIC HEART DISEASE
  14. COVERSYL [Concomitant]
     Indication: HYPERTENSION
     Route: 065
  15. COVERSYL [Concomitant]
     Indication: ISCHAEMIC HEART DISEASE

REACTIONS (2)
  - Superficial spreading melanoma stage I [Recovered/Resolved]
  - Pancytopenia [Recovered/Resolved]
